FAERS Safety Report 4947682-3 (Version None)
Quarter: 2006Q1

REPORT INFORMATION
  Report Type: 
  Country: None (occurrence: None)
  Receive Date: 20060317
  Receipt Date: 20060317
  Transmission Date: 20060701
  Serious: Yes (Other)
  Sender: FDA-Public Use
  Company Number: None

PATIENT
  Age: 37 Year
  Sex: Female
  Weight: 78.9259 kg

DRUGS (2)
  1. FENTANYL [Suspect]
     Indication: FIBROMYALGIA
     Dosage: 100 MCG ONE Q 72 HOURS
     Dates: start: 20060127, end: 20060227
  2. FENTANYL [Suspect]
     Indication: RADICULITIS
     Dosage: 100 MCG ONE Q 72 HOURS
     Dates: start: 20060127, end: 20060227

REACTIONS (2)
  - DRUG INEFFECTIVE [None]
  - SKIN IRRITATION [None]
